FAERS Safety Report 4677552-X (Version None)
Quarter: 2005Q2

REPORT INFORMATION
  Report Type: 
  Country: None (occurrence: None)
  Receive Date: 20050526
  Receipt Date: 20050526
  Transmission Date: 20051028
  Serious: Yes (Hospitalization)
  Sender: FDA-Public Use
  Company Number: None

PATIENT
  Age: 75 Year
  Sex: Male
  Weight: 100.6985 kg

DRUGS (3)
  1. LISINOPRIL [Suspect]
     Indication: BLOOD PRESSURE
     Dosage: 2.5MG   DAILY   ORAL
     Route: 048
     Dates: start: 20050228, end: 20050525
  2. FUROSEMIDE [Suspect]
     Indication: BLOOD PRESSURE
     Dosage: 40MG    DAILY    ORAL
     Route: 048
     Dates: start: 20030728, end: 20050418
  3. METOLOZONE [Concomitant]

REACTIONS (1)
  - ORTHOSTATIC HYPOTENSION [None]
